FAERS Safety Report 8240614-4 (Version None)
Quarter: 2012Q1

REPORT INFORMATION
  Report Type: 
  Country: None (occurrence: None)
  Receive Date: 20120328
  Receipt Date: 20120222
  Transmission Date: 20120608
  Serious: Yes (Other)
  Sender: FDA-Public Use
  Company Number: US-ROCHE-1037814

PATIENT
  Sex: Male

DRUGS (1)
  1. ZELBORAF [Suspect]
     Indication: PRODUCT USED FOR UNKNOWN INDICATION

REACTIONS (6)
  - NEOPLASM PROGRESSION [None]
  - VISION BLURRED [None]
  - ALOPECIA [None]
  - NEUROPATHY PERIPHERAL [None]
  - FATIGUE [None]
  - SKIN DISORDER [None]
